FAERS Safety Report 16214135 (Version 9)
Quarter: 2021Q1

REPORT INFORMATION
  Report Type: Other
  Country: DE (occurrence: DE)
  Receive Date: 20190418
  Receipt Date: 20210125
  Transmission Date: 20210419
  Serious: Yes (Life-Threatening, Other)
  Sender: FDA-Public Use
  Company Number: DE-CHIESI USA, INC.-DE-2019CHI000148

PATIENT

DRUGS (1)
  1. CUROSURF [Suspect]
     Active Substance: PORACTANT ALFA
     Indication: NEONATAL RESPIRATORY DISTRESS SYNDROME
     Dosage: 120 MG, UNK
     Route: 007
     Dates: start: 20190314, end: 20190314

REACTIONS (7)
  - Persistent foetal circulation [Recovered/Resolved]
  - End-tidal CO2 decreased [Recovered/Resolved]
  - Condition aggravated [Recovered/Resolved]
  - Hypercapnia [Recovered/Resolved]
  - Pulmonary arterial hypertension [Recovered/Resolved]
  - Underdose [Recovered/Resolved]
  - Drug ineffective [Recovered/Resolved]

NARRATIVE: CASE EVENT DATE: 20190314
